FAERS Safety Report 21130128 (Version 2)
Quarter: 2023Q2

REPORT INFORMATION
  Report Type: Report from Study
  Country: US (occurrence: US)
  Receive Date: 20220726
  Receipt Date: 20230410
  Transmission Date: 20230721
  Serious: Yes (Other)
  Sender: FDA-Public Use
  Company Number: US-KYOWAKIRIN-2022BKK011549

PATIENT

DRUGS (2)
  1. BUROSUMAB [Suspect]
     Active Substance: BUROSUMAB
     Indication: Hereditary hypophosphataemic rickets
     Dosage: 80 MG, 1X/4 WEEKS
     Route: 058
     Dates: start: 20201209
  2. BUROSUMAB [Suspect]
     Active Substance: BUROSUMAB
     Indication: Hereditary hypophosphataemic rickets
     Dosage: 80 MG, 1X/4 WEEKS
     Route: 058
     Dates: start: 20201209

REACTIONS (8)
  - Meniere^s disease [Not Recovered/Not Resolved]
  - Basal cell carcinoma [Unknown]
  - Empty sella syndrome [Unknown]
  - Fatigue [Unknown]
  - Hypoacusis [Unknown]
  - Arthralgia [Unknown]
  - Blood phosphorus decreased [Unknown]
  - Back pain [Unknown]

NARRATIVE: CASE EVENT DATE: 20210626
